FAERS Safety Report 9529450 (Version 1)
Quarter: 2013Q1

REPORT INFORMATION
  Report Type: Spontaneous
  Country: US (occurrence: None)
  Receive Date: 20130318
  Receipt Date: 20130318
  Transmission Date: 20140127
  Serious: Yes (Other)
  Sender: FDA-Public Use
  Company Number: 2012SP003936

PATIENT
  Age: 63 Year
  Sex: Male

DRUGS (5)
  1. SYLATRON [Suspect]
     Indication: MALIGNANT MELANOMA
     Route: 058
     Dates: start: 20110903, end: 20111222
  2. INTRONA [Suspect]
     Dates: start: 20110310, end: 20111222
  3. METFORMIN (METFORMIN) [Concomitant]
  4. LISINOPRIL (LISINOPRIL) [Concomitant]
  5. GEMFIBROZIL (GEMFIBROZIL) [Concomitant]

REACTIONS (5)
  - Pancytopenia [None]
  - Blood albumin decreased [None]
  - Blood calcium decreased [None]
  - Gait disturbance [None]
  - Fatigue [None]
